FAERS Safety Report 11975296 (Version 4)
Quarter: 2018Q4

REPORT INFORMATION
  Report Type: Spontaneous
  Country: US (occurrence: US)
  Receive Date: 20160128
  Receipt Date: 20181029
  Transmission Date: 20190204
  Serious: Yes (Hospitalization)
  Sender: FDA-Public Use
  Company Number: US-DSJP-DSU-2015-133631

PATIENT

DRUGS (3)
  1. BENICAR [Suspect]
     Active Substance: OLMESARTAN MEDOXOMIL
     Indication: HYPERTENSION
     Dosage: 5 MG HALF TABLET, QD
     Dates: start: 200910, end: 201406
  2. BENICAR [Suspect]
     Active Substance: OLMESARTAN MEDOXOMIL
     Dosage: 5 MG TWO TABLET, QD
     Route: 048
     Dates: end: 20140715
  3. UNSPECIFIC INSULIN [Concomitant]

REACTIONS (9)
  - Pancreatitis [Unknown]
  - Cholecystitis [Recovered/Resolved]
  - Acute kidney injury [Not Recovered/Not Resolved]
  - Product administration error [Unknown]
  - Hepatic steatosis [Unknown]
  - Gastroenteritis viral [Unknown]
  - Sprue-like enteropathy [Recovered/Resolved]
  - Renal cyst [Unknown]
  - Gastrooesophageal reflux disease [Not Recovered/Not Resolved]

NARRATIVE: CASE EVENT DATE: 200910
